FAERS Safety Report 9769340 (Version 2)
Quarter: 2013Q4

REPORT INFORMATION
  Report Type: Spontaneous
  Country: US (occurrence: US)
  Receive Date: 20131218
  Receipt Date: 20131218
  Transmission Date: 20140711
  Serious: Yes (Other)
  Sender: FDA-Public Use
  Company Number: US-009507513-1309USA010634

PATIENT
  Age: 89 Year
  Sex: Female
  Weight: 45.35 kg

DRUGS (2)
  1. MIRALAX [Suspect]
     Indication: PRODUCT USED FOR UNKNOWN INDICATION
     Dosage: 17 G, UNKNOWN
     Route: 048
     Dates: start: 2009
  2. MIRALAX [Suspect]
     Indication: ANORECTAL OPERATION

REACTIONS (6)
  - Cerebrovascular accident [Unknown]
  - Circumstance or information capable of leading to medication error [Unknown]
  - Expired drug administered [Unknown]
  - Incorrect drug administration duration [Unknown]
  - Off label use [Unknown]
  - Off label use [Unknown]
